FAERS Safety Report 9895392 (Version 2)
Quarter: 2014Q1

REPORT INFORMATION
  Report Type: Spontaneous
  Country: US (occurrence: US)
  Receive Date: 20140213
  Receipt Date: 20140213
  Transmission Date: 20141002
  Serious: No
  Sender: FDA-Public Use
  Company Number: US-BRISTOL-MYERS SQUIBB COMPANY-17353715

PATIENT
  Age: 60 Year
  Sex: Female

DRUGS (1)
  1. ABATACEPT SUBQ INJECTION 125MG/ML [Suspect]
     Indication: RHEUMATOID ARTHRITIS
     Dosage: LAST INJECTION ON 24JAN13?START WITH IV THEN CHANGE TO SC ON 15NOV12, AGIN SWITCH TO IV
     Route: 058
     Dates: start: 20121115, end: 20130227

REACTIONS (4)
  - Upper respiratory tract infection [Recovered/Resolved]
  - Malaise [Unknown]
  - Poor venous access [Unknown]
  - Rheumatoid arthritis [Unknown]
